FAERS Safety Report 6549009-2 (Version None)
Quarter: 2010Q1

REPORT INFORMATION
  Report Type: 
  Country: None (occurrence: None)
  Receive Date: 20100125
  Receipt Date: 20100115
  Transmission Date: 20100710
  Serious: Yes (Hospitalization, Other)
  Sender: FDA-Public Use
  Company Number: JP-JNJFOC-20091205623

PATIENT
  Sex: Male

DRUGS (17)
  1. PLACEBO [Suspect]
     Indication: PROCEDURAL PAIN
     Route: 062
  2. PLACEBO [Suspect]
     Indication: COMPLEX REGIONAL PAIN SYNDROME
     Route: 062
  3. PLACEBO [Suspect]
     Indication: POST HERPETIC NEURALGIA
     Route: 062
  4. FENTANYL [Suspect]
     Indication: PROCEDURAL PAIN
     Route: 062
  5. FENTANYL [Suspect]
     Indication: COMPLEX REGIONAL PAIN SYNDROME
     Route: 062
  6. FENTANYL [Suspect]
     Indication: POST HERPETIC NEURALGIA
     Route: 062
  7. AMOXAN [Concomitant]
     Indication: ANALGESIC THERAPY
     Route: 048
  8. TOLEDOMIN [Concomitant]
     Indication: ANALGESIC THERAPY
     Route: 048
  9. SELBEX [Concomitant]
     Indication: GASTROINTESTINAL DISORDER THERAPY
     Route: 048
  10. NEUROTROPIN [Concomitant]
     Indication: ANALGESIC THERAPY
     Route: 048
  11. LEXOTAN [Concomitant]
     Indication: ANALGESIC THERAPY
     Route: 048
  12. METHYCOBAL [Concomitant]
     Indication: NEUROPATHY PERIPHERAL
     Route: 048
  13. MEILAX [Concomitant]
     Indication: ANALGESIC THERAPY
     Route: 048
  14. TEGRETOL [Concomitant]
     Indication: ANALGESIC THERAPY
     Route: 048
  15. PAXIL [Concomitant]
     Indication: ANALGESIC THERAPY
     Route: 048
  16. ATARAX [Concomitant]
     Indication: ANALGESIC THERAPY
     Route: 048
  17. SILECE [Concomitant]
     Indication: ANALGESIC THERAPY
     Route: 048

REACTIONS (1)
  - HAEMORRHOIDS [None]
